FAERS Safety Report 10204114 (Version 2)
Quarter: 2014Q3

REPORT INFORMATION
  Report Type: Spontaneous
  Country: US (occurrence: US)
  Receive Date: 20140529
  Receipt Date: 20140702
  Transmission Date: 20150326
  Serious: No
  Sender: FDA-Public Use
  Company Number: US-009507513-1405USA010804

PATIENT
  Sex: Female
  Weight: 63.39 kg

DRUGS (1)
  1. NUVARING [Suspect]
     Active Substance: ETHINYL ESTRADIOL\ETONOGESTREL
     Dosage: ONE RING EVERY 3 WEEKS
     Route: 067
     Dates: start: 20140124

REACTIONS (3)
  - Drug dose omission [Unknown]
  - Device breakage [Unknown]
  - No adverse event [Unknown]
